FAERS Safety Report 4427824-9 (Version None)
Quarter: 2004Q3

REPORT INFORMATION
  Report Type: 
  Country: None (occurrence: None)
  Receive Date: 20040812
  Receipt Date: 20040803
  Transmission Date: 20050211
  Serious: Yes (Other)
  Sender: FDA-Public Use
  Company Number: 2004053573

PATIENT
  Sex: Female

DRUGS (1)
  1. CYCLOKAPRON (TRANEXAMIC ACID) [Suspect]
     Indication: POLYP

REACTIONS (1)
  - TRANSIENT ISCHAEMIC ATTACK [None]
